FAERS Safety Report 6646833-2 (Version None)
Quarter: 2010Q1

REPORT INFORMATION
  Report Type: 
  Country: None (occurrence: None)
  Receive Date: 20100323
  Receipt Date: 20100315
  Transmission Date: 20100710
  Serious: Yes (Death)
  Sender: FDA-Public Use
  Company Number: US-SANOFI-AVENTIS-2010SA015638

PATIENT
  Age: 84 Year
  Sex: Male

DRUGS (2)
  1. PLAVIX [Suspect]
     Indication: STENT PLACEMENT
     Route: 048
     Dates: end: 20080101
  2. VIOXX [Concomitant]

REACTIONS (3)
  - CEREBRAL HAEMORRHAGE [None]
  - CONTUSION [None]
  - ROAD TRAFFIC ACCIDENT [None]
